FAERS Safety Report 23259267 (Version 1)
Quarter: 2023Q4

REPORT INFORMATION
  Report Type: Report from Study
  Country: CA (occurrence: CA)
  Receive Date: 20231204
  Receipt Date: 20231204
  Transmission Date: 20240110
  Serious: Yes (Death, Hospitalization)
  Sender: FDA-Public Use
  Company Number: CA-MYLANLABS-2023M1067634

PATIENT
  Age: 79 Year
  Sex: Female

DRUGS (3)
  1. CLOZAPINE [Suspect]
     Active Substance: CLOZAPINE
     Indication: Product used for unknown indication
     Dosage: 12.5 MILLIGRAM, QD
     Route: 065
     Dates: start: 201911
  2. MELATONIN [Concomitant]
     Active Substance: MELATONIN
     Dosage: UNK
     Route: 065
  3. VALPROIC ACID [Concomitant]
     Active Substance: VALPROIC ACID
     Dosage: UNK
     Route: 065

REACTIONS (8)
  - Death [Fatal]
  - Hypotension [Unknown]
  - Dyspnoea [Unknown]
  - Tachycardia [Unknown]
  - Dysphagia [Unknown]
  - Urinary tract infection [Unknown]
  - Pneumonia [Unknown]
  - Decreased appetite [Unknown]

NARRATIVE: CASE EVENT DATE: 20230521
